FAERS Safety Report 6926887-6 (Version None)
Quarter: 2010Q3

REPORT INFORMATION
  Report Type: 
  Country: None (occurrence: None)
  Receive Date: 20100816
  Receipt Date: 20100702
  Transmission Date: 20110219
  Serious: No
  Sender: FDA-Public Use
  Company Number: US-ABBOTT-10P-163-0655298-00

PATIENT
  Sex: Female
  Weight: 97.61 kg

DRUGS (1)
  1. SIMCOR [Suspect]
     Indication: LOW DENSITY LIPOPROTEIN INCREASED
     Dosage: 500/20MG X 2 ORDERED; PT. TAKING 500/20MG X 1 TAB AT BEDTIME
     Dates: start: 20100601

REACTIONS (3)
  - FLUSHING [None]
  - INCORRECT DOSE ADMINISTERED [None]
  - SKIN BURNING SENSATION [None]
